FAERS Safety Report 8172766-9 (Version None)
Quarter: 2012Q1

REPORT INFORMATION
  Report Type: 
  Country: None (occurrence: None)
  Receive Date: 20120229
  Receipt Date: 20120216
  Transmission Date: 20120608
  Serious: Yes (Hospitalization, Disabling, Other)
  Sender: FDA-Public Use
  Company Number: GB-RANBAXY-2012R1-52868

PATIENT
  Age: 76 Year
  Sex: Male
  Weight: 80 kg

DRUGS (5)
  1. VALPROIC ACID [Concomitant]
     Indication: EPILEPSY
     Dosage: 1000 MG, QOD
     Route: 048
  2. VALPROIC ACID [Concomitant]
     Dosage: 200 MG, QD
     Route: 048
  3. ENOXAPARIN SODIUM [Concomitant]
     Indication: PRODUCT USED FOR UNKNOWN INDICATION
     Dosage: UNK
     Route: 058
     Dates: start: 20120103
  4. CIPROFLOXACIN [Suspect]
     Indication: CHOLANGITIS
     Dosage: 250 MG, BID
     Route: 048
     Dates: start: 20111001, end: 20111101
  5. LEVETIRACETAM [Concomitant]
     Indication: EPILEPSY
     Dosage: UNK
     Route: 048

REACTIONS (3)
  - TENDONITIS [None]
  - ERYTHEMA [None]
  - OEDEMA PERIPHERAL [None]
